FAERS Safety Report 5670098-1 (Version None)
Quarter: 2008Q1

REPORT INFORMATION
  Report Type: 
  Country: None (occurrence: None)
  Receive Date: 20080312
  Receipt Date: 20080229
  Transmission Date: 20080703
  Serious: Yes (Hospitalization)
  Sender: FDA-Public Use
  Company Number: GXKR2008JP02217

PATIENT
  Age: 30 Year
  Sex: Female

DRUGS (6)
  1. ACETAMINOPHEN [Suspect]
     Indication: NASOPHARYNGITIS
     Dates: start: 20011111
  2. NORFLOXACIN [Suspect]
     Indication: NASOPHARYNGITIS
     Dates: start: 20011111
  3. TRANEXAMIC ACID (NGX)(TRANEXAMIC ACID) UNKNOWN [Suspect]
     Indication: NASOPHARYNGITIS
     Dates: start: 20011111
  4. MEFENAMIC ACID [Suspect]
  5. ALUMINIUM HYDROXIDE W/ MAGNESIUM HYDROXIDE (ALUMINIUM HYDROXIDE, MAGNE [Suspect]
  6. TEPRENONE(TEPRENONE) UNKNOWN [Suspect]

REACTIONS (10)
  - BACILLUS INFECTION [None]
  - CORNEAL DISORDER [None]
  - DIARRHOEA [None]
  - HAEMATOCHEZIA [None]
  - HEPATIC FUNCTION ABNORMAL [None]
  - HYPERBILIRUBINAEMIA [None]
  - ILEUS [None]
  - INTESTINAL ULCER [None]
  - PLEURISY [None]
  - TOXIC EPIDERMAL NECROLYSIS [None]
